FAERS Safety Report 17110873 (Version 1)
Quarter: 2019Q4

REPORT INFORMATION
  Report Type: Spontaneous
  Country: US (occurrence: US)
  Receive Date: 20191204
  Receipt Date: 20191204
  Transmission Date: 20200122
  Serious: Yes (Hospitalization)
  Sender: FDA-Public Use
  Company Number: NVSC2019US053787

PATIENT
  Age: 17 Year
  Sex: Male

DRUGS (11)
  1. BENZATROPINE [Interacting]
     Active Substance: BENZTROPINE
     Indication: PROPHYLAXIS
     Dosage: UNK
     Route: 065
  2. LITHIUM. [Interacting]
     Active Substance: LITHIUM
     Indication: AUTISM SPECTRUM DISORDER
     Dosage: UNK
     Route: 065
  3. LEVOTHYROXINE. [Concomitant]
     Active Substance: LEVOTHYROXINE
     Indication: HYPOTHYROIDISM
     Dosage: UNK
     Route: 065
  4. HALOPERIDOL. [Suspect]
     Active Substance: HALOPERIDOL
     Indication: CEREBRAL PALSY
     Dosage: UNK
     Route: 065
  5. HALOPERIDOL. [Interacting]
     Active Substance: HALOPERIDOL
     Indication: AUTISM SPECTRUM DISORDER
     Dosage: UNK
     Route: 065
  6. BENZATROPINE [Interacting]
     Active Substance: BENZTROPINE
     Dosage: UNK
     Route: 065
  7. LITHIUM. [Interacting]
     Active Substance: LITHIUM
     Indication: CEREBRAL PALSY
     Dosage: UNK
     Route: 065
  8. HALOPERIDOL. [Interacting]
     Active Substance: HALOPERIDOL
     Indication: BIPOLAR DISORDER
  9. LITHIUM. [Interacting]
     Active Substance: LITHIUM
     Indication: BIPOLAR DISORDER
  10. HALOPERIDOL. [Interacting]
     Active Substance: HALOPERIDOL
     Indication: AGGRESSION
  11. LITHIUM. [Interacting]
     Active Substance: LITHIUM
     Indication: AGGRESSION

REACTIONS (5)
  - Drug interaction [Unknown]
  - Hyperprolactinaemia [Recovering/Resolving]
  - Acute kidney injury [Unknown]
  - Urinary tract obstruction [Unknown]
  - Hydronephrosis [Unknown]
